FAERS Safety Report 9475167 (Version 1)
Quarter: 2013Q3

REPORT INFORMATION
  Report Type: Spontaneous
  Country: US (occurrence: None)
  Receive Date: 20130822
  Receipt Date: 20130822
  Transmission Date: 20140515
  Serious: No
  Sender: FDA-Public Use
  Company Number: None

PATIENT
  Age: 57 Year
  Sex: Female
  Weight: 127.46 kg

DRUGS (1)
  1. METHOTREXATE [Suspect]
     Indication: RHEUMATOID ARTHRITIS
     Dosage: 8 PILLS ONCE WEEKLY TAKEN BY MOUTH
     Route: 048

REACTIONS (4)
  - Headache [None]
  - Eye pain [None]
  - Nausea [None]
  - Product substitution issue [None]
